FAERS Safety Report 5833351-4 (Version None)
Quarter: 2008Q3

REPORT INFORMATION
  Report Type: 
  Country: None (occurrence: None)
  Receive Date: 20080805
  Receipt Date: 20080722
  Transmission Date: 20090109
  Serious: Yes (Hospitalization)
  Sender: FDA-Public Use
  Company Number: FR-ELI_LILLY_AND_COMPANY-FR200807004337

PATIENT
  Age: 58 Year
  Sex: Male

DRUGS (4)
  1. ALIMTA [Suspect]
     Indication: BRONCHIAL CARCINOMA
     Dosage: 500 MG/M2, DAILY (1/D)
     Route: 042
     Dates: start: 20080110, end: 20080110
  2. FOLIC ACID [Concomitant]
     Indication: PROPHYLAXIS
     Dosage: UNK, UNKNOWN
     Route: 065
  3. LYRICA [Concomitant]
     Dosage: UNK, UNKNOWN
     Route: 065
  4. SOLUPRED [Concomitant]
     Dosage: 5 MG, UNKNOWN
     Route: 048
     Dates: start: 20080109, end: 20080111

REACTIONS (2)
  - PRURITUS [None]
  - RASH MORBILLIFORM [None]
